FAERS Safety Report 18852862 (Version 1)
Quarter: 2021Q1

REPORT INFORMATION
  Report Type: Spontaneous
  Country: IT (occurrence: IT)
  Receive Date: 20210205
  Receipt Date: 20210205
  Transmission Date: 20210420
  Serious: Yes (Death, Other)
  Sender: FDA-Public Use
  Company Number: IT-SUN PHARMACEUTICAL INDUSTRIES LTD-2021RR-279372

PATIENT
  Age: 23 Year
  Sex: Female

DRUGS (15)
  1. ZOLEDRONIC ACID [Suspect]
     Active Substance: ZOLEDRONIC ACID
     Indication: RECTAL CANCER METASTATIC
     Dosage: 4MG EVERY 4 WEEKS
     Route: 065
  2. CALCIUM FOLINAT [Suspect]
     Active Substance: LEUCOVORIN CALCIUM
     Indication: RECTAL CANCER METASTATIC
     Dosage: 100 MG/M2 DAYS 1 AND 2
     Route: 065
  3. 5?FLUOROURACIL [Suspect]
     Active Substance: FLUOROURACIL
     Dosage: INFUSION 600 MG/M2 DAYS 1 AND 2, EVERY 2 WEEKS (FOLFOX4)
     Route: 065
  4. OXALIPLATIN. [Suspect]
     Active Substance: OXALIPLATIN
     Indication: RECTAL CANCER METASTATIC
     Dosage: 85 MG/M2 DAY 1
     Route: 065
  5. 5?FLUOROURACIL [Suspect]
     Active Substance: FLUOROURACIL
     Indication: RECTAL CANCER METASTATIC
     Dosage: 400 MG/M2 DAYS 1 AND 2
     Route: 040
  6. CALCIUM FOLINAT [Suspect]
     Active Substance: LEUCOVORIN CALCIUM
     Dosage: INFUSION 600 MG/M2 DAYS 1 AND 2, EVERY 2 WEEKS (FOLFOX4)
     Route: 065
  7. ZOLEDRONIC ACID [Suspect]
     Active Substance: ZOLEDRONIC ACID
     Dosage: UNK
     Route: 065
  8. CALCIUM FOLINAT [Suspect]
     Active Substance: LEUCOVORIN CALCIUM
     Dosage: INFUSION 600 MG/M2 DAYS 1 AND 2, EVERY 2 WEEKS (FOLFIRI)
     Route: 065
  9. BEVACIZUMAB. [Suspect]
     Active Substance: BEVACIZUMAB
     Indication: RECTAL CANCER METASTATIC
     Dosage: 5 MILLIGRAM/KILOGRAM, 5MG/KG EVERY 2 WEEKS
     Route: 065
  10. OXALIPLATIN. [Suspect]
     Active Substance: OXALIPLATIN
     Dosage: INFUSION 600 MG/M2 DAYS 1 AND 2, EVERY 2 WEEKS (FOLFOX4)
     Route: 065
  11. 5?FLUOROURACIL [Suspect]
     Active Substance: FLUOROURACIL
     Dosage: INFUSION 600 MG/M2 DAYS 1 AND 2, EVERY 2 WEEKS (FOLFIRI)
     Route: 065
  12. IRINOTECAN [Suspect]
     Active Substance: IRINOTECAN
     Indication: RECTAL CANCER METASTATIC
     Dosage: 180 MILLIGRAM/SQ. METER, DAY 1
     Route: 065
  13. 5?FLUOROURACIL [Suspect]
     Active Substance: FLUOROURACIL
     Dosage: 400 MG/M2 DAYS 1 AND 2
     Route: 040
  14. IRINOTECAN [Suspect]
     Active Substance: IRINOTECAN
     Dosage: INFUSION 600 MG/M2 DAYS 1 AND 2, EVERY 2 WEEKS (FOLFIRI)
     Route: 065
  15. CALCIUM FOLINAT [Suspect]
     Active Substance: LEUCOVORIN CALCIUM
     Dosage: 100 MG/M2 DAYS 1 AND 2
     Route: 065

REACTIONS (5)
  - Ataxia [Unknown]
  - Neoplasm progression [Unknown]
  - Condition aggravated [Unknown]
  - Metastases to central nervous system [Unknown]
  - Seizure [Unknown]

NARRATIVE: CASE EVENT DATE: 201005
